FAERS Safety Report 22048536 (Version 1)
Quarter: 2023Q1

REPORT INFORMATION
  Report Type: Spontaneous
  Country: US (occurrence: None)
  Receive Date: 20230225
  Receipt Date: 20230225
  Transmission Date: 20230418
  Serious: Yes (unspecified)
  Sender: FDA-Public Use
  Company Number: None

PATIENT
  Age: 64 Year
  Sex: Female
  Weight: 90 kg

DRUGS (1)
  1. SODIUM BICARBONATE\SODIUM CHLORIDE [Suspect]
     Active Substance: SODIUM BICARBONATE\SODIUM CHLORIDE
     Indication: Nasal disorder
     Dosage: OTHER QUANTITY : .08 OUNCE(S);?FREQUENCY : AT BEDTIME;?OTHER ROUTE : NASAL SAVAGE;?
     Route: 050
     Dates: start: 20230224, end: 20230225

REACTIONS (3)
  - Sinus disorder [None]
  - Swelling [None]
  - Dyspnoea [None]

NARRATIVE: CASE EVENT DATE: 20230224
